FAERS Safety Report 7821036-4 (Version None)
Quarter: 2011Q4

REPORT INFORMATION
  Report Type: 
  Country: None (occurrence: None)
  Receive Date: 20111018
  Receipt Date: 20101012
  Transmission Date: 20120403
  Serious: No
  Sender: FDA-Public Use
  Company Number: US-ASTRAZENECA-2010SE48409

PATIENT
  Sex: Male

DRUGS (3)
  1. COMBIVENT [Concomitant]
     Route: 065
  2. SYMBICORT [Suspect]
     Route: 055
  3. SPIRIVA [Concomitant]
     Route: 065

REACTIONS (1)
  - DYSPNOEA [None]
